FAERS Safety Report 22311999 (Version 2)
Quarter: 2023Q2

REPORT INFORMATION
  Report Type: Report from Study
  Country: US (occurrence: US)
  Receive Date: 20230512
  Receipt Date: 20230518
  Transmission Date: 20230721
  Serious: Yes (Hospitalization, Other)
  Sender: FDA-Public Use
  Company Number: US-AMGEN-USASP2023080231

PATIENT
  Age: 69 Year
  Sex: Male

DRUGS (18)
  1. REPATHA [Suspect]
     Active Substance: EVOLOCUMAB
     Indication: Product used for unknown indication
     Dosage: 140 MILLIGRAM
     Route: 058
     Dates: start: 2018, end: 2018
  2. REPATHA [Suspect]
     Active Substance: EVOLOCUMAB
     Dosage: 140 MILLIGRAM
     Route: 058
     Dates: start: 20230504
  3. PROLIA [Suspect]
     Active Substance: DENOSUMAB
     Indication: Osteoporosis
     Route: 065
  4. PRALUENT [Concomitant]
     Active Substance: ALIROCUMAB
     Dosage: UNK
  5. FLONASE [Concomitant]
     Active Substance: FLUTICASONE PROPIONATE
     Indication: Chronic obstructive pulmonary disease
     Dosage: 50 MILLIGRAM
  6. LIDOCAINE 4% MENTHOL 4% [Concomitant]
     Active Substance: LIDOCAINE\MENTHOL
     Indication: Pain
  7. NITROGLYCERIN [Concomitant]
     Active Substance: NITROGLYCERIN
     Indication: Cardiac failure chronic
  8. OMEGA 3 [Concomitant]
     Active Substance: CAPSAICIN
  9. MESTINON [Concomitant]
     Active Substance: PYRIDOSTIGMINE BROMIDE
     Indication: Myasthenia gravis
     Dosage: 60 MILLIGRAM
  10. DIHYDROCODEINE PHOSPHATE [Concomitant]
     Active Substance: DIHYDROCODEINE PHOSPHATE
     Indication: Pain in extremity
  11. ASPIRIN [Concomitant]
     Active Substance: ASPIRIN
     Dosage: 81 MILLIGRAM, QD
  12. CICLOPIROX [Concomitant]
     Active Substance: CICLOPIROX
     Indication: Onychomycosis
  13. RECLAST [Concomitant]
     Active Substance: ZOLEDRONIC ACID
     Indication: Osteoporosis
  14. VITAMIN E [Concomitant]
     Active Substance: .ALPHA.-TOCOPHEROL
  15. VITAMIN D [Concomitant]
     Active Substance: VITAMIN D NOS
  16. CALCIUM [Concomitant]
     Active Substance: CALCIUM
  17. VITAMIN C [Concomitant]
     Active Substance: ASCORBIC ACID
  18. IVIGLOB EX [Concomitant]
     Active Substance: HUMAN IMMUNOGLOBULIN G

REACTIONS (14)
  - Myasthenia gravis crisis [Unknown]
  - COVID-19 [Unknown]
  - Pruritus [Recovering/Resolving]
  - Laboratory test abnormal [Unknown]
  - Anaemia [Unknown]
  - Carbon dioxide decreased [Unknown]
  - Decreased immune responsiveness [Unknown]
  - Pain in extremity [Recovered/Resolved]
  - Balance disorder [Unknown]
  - Visual impairment [Unknown]
  - Dizziness [Recovered/Resolved]
  - Arthralgia [Recovered/Resolved]
  - Upper respiratory tract infection [Unknown]
  - Eye pain [Unknown]

NARRATIVE: CASE EVENT DATE: 20221201
